FAERS Safety Report 9561814 (Version 1)
Quarter: 2013Q1

REPORT INFORMATION
  Report Type: Spontaneous
  Country: US (occurrence: None)
  Receive Date: 20130305
  Receipt Date: 20130305
  Transmission Date: 20140127
  Serious: Yes (Hospitalization)
  Sender: FDA-Public Use
  Company Number: 163-21880-12062821

PATIENT
  Age: 71 Year
  Sex: Male

DRUGS (15)
  1. REVLIMID [Suspect]
     Indication: PLASMA CELL MYELOMA
     Dosage: CAPSULE, 5 MG, DAILY X 21 DAYS, PO
     Dates: start: 200906
  2. DEXAMETHASONE (DEXAMETHASONE) [Concomitant]
  3. METHYLPREDNISOLONE (METHYLPREDNISOLONE) [Concomitant]
  4. INSULIN GLARGINE (INSULIN GLARGINE) [Concomitant]
  5. INSULIN ASPART (INSULIN ASPART) [Concomitant]
  6. ALENDRONATE (ALENDRONATE SODIUM) [Concomitant]
  7. LEVOTHYROXINE (LEVOTHYROXINE) [Concomitant]
  8. POTASSIUM (POTASSIUM) [Concomitant]
  9. TERAZOSIN (TERAZOSIN) [Concomitant]
  10. DICLOFENAC (DICLOFENAC) [Concomitant]
  11. FENTANYL (FENTANYL) [Concomitant]
  12. PERCOCET (OXYCOCET) [Concomitant]
  13. CHLORPROMAZINE (CHLORPROMAZINE) [Concomitant]
  14. MECLIZINE (MECLOZINE) [Concomitant]
  15. ERGOCALCIFEROL (ERGOCALCIFEROL) [Concomitant]

REACTIONS (3)
  - Deep vein thrombosis [None]
  - Neuropathy peripheral [None]
  - Thrombocytopenia [None]
